FAERS Safety Report 5733105-3 (Version None)
Quarter: 2008Q2

REPORT INFORMATION
  Report Type: 
  Country: None (occurrence: None)
  Receive Date: 20080509
  Receipt Date: 20080502
  Transmission Date: 20081010
  Serious: Yes (Disabling, Other)
  Sender: FDA-Public Use
  Company Number: GBWYE212317JAN07

PATIENT
  Sex: Female
  Weight: 56.5 kg

DRUGS (10)
  1. SIROLIMUS [Suspect]
     Indication: IMMUNOSUPPRESSION
     Route: 048
     Dates: start: 20040311, end: 20070105
  2. PRAVASTATIN [Concomitant]
     Indication: BLOOD CHOLESTEROL INCREASED
     Route: 048
     Dates: start: 19971113
  3. NIFEDIPINE [Concomitant]
     Indication: HYPERTENSION
     Route: 048
     Dates: start: 20011009
  4. COLCHICINE [Concomitant]
     Indication: GOUT
     Dosage: 500UG, EVERY 4 HOURS UNTIL VOMITING OR DIARRHOEA OR PAIN DISAPPEARED
     Route: 048
     Dates: start: 20060905, end: 20060927
  5. ATENOLOL [Concomitant]
     Indication: HYPERTENSION
     Route: 048
     Dates: start: 20030210
  6. CLOPIDOGREL [Concomitant]
     Indication: ISCHAEMIC HEART DISEASE PROPHYLAXIS
     Route: 048
     Dates: start: 20060516
  7. NOVORAPID [Concomitant]
     Indication: BLOOD GLUCOSE FLUCTUATION
     Dosage: 4-12 UNITS THREE TIMES DAILY
     Route: 058
     Dates: start: 20050927
  8. LEVEMIR [Concomitant]
     Indication: BLOOD GLUCOSE FLUCTUATION
     Dosage: 20 UNITS ONCE AT NIGHT
     Route: 058
     Dates: start: 20050927
  9. AZATHIOPRINE [Concomitant]
     Indication: KIDNEY TRANSPLANT REJECTION
     Route: 048
     Dates: start: 20041222
  10. ASPIRIN [Concomitant]
     Indication: THROMBOLYSIS
     Route: 048
     Dates: start: 20031115

REACTIONS (5)
  - ABDOMINAL DISTENSION [None]
  - FATIGUE [None]
  - MENTAL IMPAIRMENT [None]
  - OEDEMA PERIPHERAL [None]
  - PAIN IN EXTREMITY [None]
